FAERS Safety Report 7624840 (Version 3)
Quarter: 2014Q1

REPORT INFORMATION
  Report Type: Spontaneous
  Country: US (occurrence: US)
  Receive Date: 20101012
  Receipt Date: 20140122
  Transmission Date: 20141002
  Serious: Yes (Hospitalization, Other)
  Sender: FDA-Public Use
  Company Number: US-BAYER-201036259NA

PATIENT
  Age: 32 Year
  Sex: Female
  Weight: 82 kg

DRUGS (4)
  1. YASMIN [Suspect]
     Dosage: UNK
     Route: 048
     Dates: start: 20041220, end: 2006
  2. YASMIN [Suspect]
  3. ALMOTRIPTAN [Concomitant]
     Dosage: UNK
     Dates: start: 2004, end: 2009
  4. MOTRIN [Concomitant]
     Dosage: UNK
     Dates: start: 2007

REACTIONS (5)
  - Cholelithiasis [None]
  - Cholecystitis acute [None]
  - Gallbladder disorder [None]
  - Abdominal pain upper [None]
  - Headache [None]
